FAERS Safety Report 5317637-8 (Version None)
Quarter: 2007Q2

REPORT INFORMATION
  Report Type: 
  Country: None (occurrence: None)
  Receive Date: 20070507
  Receipt Date: 20070424
  Transmission Date: 20071010
  Serious: Yes (Other)
  Sender: FDA-Public Use
  Company Number: PHBS2007JP07058

PATIENT
  Age: 87 Year
  Sex: Female

DRUGS (2)
  1. FASTIC [Suspect]
     Indication: DIABETES MELLITUS
     Route: 048
  2. MINOCYCLINE HCL [Concomitant]

REACTIONS (2)
  - DEPRESSION [None]
  - HYPOGLYCAEMIA [None]
